FAERS Safety Report 19697251 (Version 1)
Quarter: 2021Q3

REPORT INFORMATION
  Report Type: Report from Study
  Country: US (occurrence: US)
  Receive Date: 20210813
  Receipt Date: 20210813
  Transmission Date: 20211014
  Serious: Yes (Hospitalization)
  Sender: FDA-Public Use
  Company Number: US-SERVIER-S21008774

PATIENT

DRUGS (16)
  1. TN UNSPECIFIED [CYTARABINE] [Suspect]
     Active Substance: CYTARABINE
     Indication: ACUTE LYMPHOCYTIC LEUKAEMIA
     Dosage: 135 MG, OTHER
     Route: 042
     Dates: start: 20190506, end: 20191106
  2. ACETAMINOPHEN. [Concomitant]
     Active Substance: ACETAMINOPHEN
     Indication: PRODUCT USED FOR UNKNOWN INDICATION
     Dosage: UNK
     Route: 065
     Dates: start: 20190330
  3. PEGASPARGASE [Suspect]
     Active Substance: PEGASPARGASE
     Dosage: 2500 IU
     Route: 042
     Dates: start: 20191114
  4. TN UNSPECIFIED [RUXOLITINIB PHOSPHATE] [Suspect]
     Active Substance: RUXOLITINIB PHOSPHATE
     Dosage: 65 MG, BID
     Route: 048
     Dates: start: 20191111
  5. TN UNSPECIFIED [VINCRISTINE SULFATE] [Suspect]
     Active Substance: VINCRISTINE SULFATE
     Dosage: 2 MG, OTHER
     Route: 042
     Dates: start: 20191113
  6. TN UNSPECIFIED [RUXOLITINIB PHOSPHATE] [Suspect]
     Active Substance: RUXOLITINIB PHOSPHATE
     Indication: ACUTE LYMPHOCYTIC LEUKAEMIA
     Dosage: 65 MG, BID
     Route: 048
     Dates: start: 20190506, end: 20191106
  7. TN UNSPECIFIED [MERCAPTOPURINE] [Suspect]
     Active Substance: MERCAPTOPURINE
     Indication: ACUTE LYMPHOCYTIC LEUKAEMIA
     Dosage: 50 MG, OTHER
     Route: 048
     Dates: start: 20190506, end: 20191106
  8. TN UNSPECIFIED [METHOTREXATE] [Suspect]
     Active Substance: METHOTREXATE
     Dosage: 15 MG, OTHER
     Route: 037
     Dates: start: 20191113
  9. TN UNSPECIFIED [MERCAPTOPURINE] [Suspect]
     Active Substance: MERCAPTOPURINE
     Dosage: 50 MG, OTHER
     Route: 048
     Dates: start: 20191113
  10. TN UNSPECIFIED [CYTARABINE] [Suspect]
     Active Substance: CYTARABINE
     Dosage: 135 MG, OTHER
     Route: 042
     Dates: start: 20191122
  11. TN UNSPECIFIED [VINCRISTINE SULFATE] [Suspect]
     Active Substance: VINCRISTINE SULFATE
     Indication: ACUTE LYMPHOCYTIC LEUKAEMIA
     Dosage: 2 MG, OTHER
     Route: 042
     Dates: start: 20190522, end: 20191106
  12. KYTRIL [Concomitant]
     Active Substance: GRANISETRON HYDROCHLORIDE
     Indication: PRODUCT USED FOR UNKNOWN INDICATION
     Dosage: UNK
     Route: 065
     Dates: start: 20190525
  13. HEMATOLOGY/ONCOLOGY MOUTHWASH [Concomitant]
     Indication: PRODUCT USED FOR UNKNOWN INDICATION
     Dosage: UNK
     Route: 065
  14. PEGASPARGASE [Suspect]
     Active Substance: PEGASPARGASE
     Indication: ACUTE LYMPHOCYTIC LEUKAEMIA
     Dosage: 2500 IU
     Route: 042
     Dates: start: 20190619, end: 20191106
  15. TN UNSPECIFIED [METHOTREXATE] [Suspect]
     Active Substance: METHOTREXATE
     Indication: ACUTE LYMPHOCYTIC LEUKAEMIA
     Dosage: 15 MG, OTHER
     Route: 037
     Dates: start: 20190514, end: 20191106
  16. BENADRYL [Concomitant]
     Active Substance: DIPHENHYDRAMINE HYDROCHLORIDE
     Indication: PRODUCT USED FOR UNKNOWN INDICATION
     Dosage: UNK
     Route: 065
     Dates: start: 20190325

REACTIONS (3)
  - Sepsis [Recovered/Resolved]
  - Adenovirus infection [Recovered/Resolved]
  - Tachycardia [Recovered/Resolved]

NARRATIVE: CASE EVENT DATE: 20191106
